FAERS Safety Report 13000366 (Version 2)
Quarter: 2017Q3

REPORT INFORMATION
  Report Type: Spontaneous
  Country: JP (occurrence: JP)
  Receive Date: 20161206
  Receipt Date: 20170915
  Transmission Date: 20171127
  Serious: Yes (Other)
  Sender: FDA-Public Use
  Company Number: JP-ROCHE-1863641

PATIENT
  Age: 77 Year
  Sex: Male

DRUGS (5)
  1. CEFTRIAXONE. [Suspect]
     Active Substance: CEFTRIAXONE
     Indication: BONE MARROW FAILURE
     Route: 065
  2. NEDAPLATIN [Suspect]
     Active Substance: NEDAPLATIN
     Indication: LIP AND/OR ORAL CAVITY CANCER
     Dosage: 20 MG/M2
     Route: 013
  3. DOCETAXEL. [Suspect]
     Active Substance: DOCETAXEL
     Indication: LIP AND/OR ORAL CAVITY CANCER
     Dosage: 15MG/M2
     Route: 013
  4. FILGRASTIM [Suspect]
     Active Substance: FILGRASTIM
     Indication: BONE MARROW FAILURE
     Route: 065
  5. 5-FU [Suspect]
     Active Substance: FLUOROURACIL
     Indication: LIP AND/OR ORAL CAVITY CANCER
     Dosage: 100- 50MG/M2/DAY
     Route: 013

REACTIONS (2)
  - Bone marrow failure [Recovered/Resolved]
  - Pneumonia aspiration [Recovering/Resolving]
